FAERS Safety Report 6742588-1 (Version None)
Quarter: 2010Q2

REPORT INFORMATION
  Report Type: 
  Country: None (occurrence: None)
  Receive Date: 20100526
  Receipt Date: 20100519
  Transmission Date: 20101027
  Serious: Yes (Other)
  Sender: FDA-Public Use
  Company Number: AU-ABBOTT-10P-008-0645773-00

PATIENT
  Sex: Female
  Weight: 120 kg

DRUGS (1)
  1. REDUCTIL [Suspect]
     Indication: WEIGHT DECREASED

REACTIONS (1)
  - CROHN'S DISEASE [None]
